FAERS Safety Report 13542050 (Version 2)
Quarter: 2017Q2

REPORT INFORMATION
  Report Type: Spontaneous
  Country: US (occurrence: US)
  Receive Date: 20170512
  Receipt Date: 20170615
  Transmission Date: 20170830
  Serious: Yes (Death, Hospitalization)
  Sender: FDA-Public Use
  Company Number: US-ACTELION-A-US2017-153552

PATIENT
  Age: 72 Year
  Sex: Male

DRUGS (10)
  1. OMEPRAZOLE. [Concomitant]
     Active Substance: OMEPRAZOLE
  2. METHOCARBAMOL. [Concomitant]
     Active Substance: METHOCARBAMOL
  3. OPSUMIT [Suspect]
     Active Substance: MACITENTAN
     Indication: PULMONARY ARTERIAL HYPERTENSION
     Dosage: 10 MG, QD
     Route: 048
     Dates: start: 20170314
  4. ATORVASTATIN [Concomitant]
     Active Substance: ATORVASTATIN
  5. TESTOSTERONE. [Concomitant]
     Active Substance: TESTOSTERONE
  6. HYDROCODONE [Concomitant]
     Active Substance: HYDROCODONE
  7. ADCIRCA [Concomitant]
     Active Substance: TADALAFIL
  8. ASPIRIN. [Concomitant]
     Active Substance: ASPIRIN
  9. LOSARTAN. [Concomitant]
     Active Substance: LOSARTAN
  10. PROVENTIL [Concomitant]
     Active Substance: ALBUTEROL

REACTIONS (2)
  - Acute respiratory distress syndrome [Fatal]
  - Pneumonia [Unknown]

NARRATIVE: CASE EVENT DATE: 20170514
